FAERS Safety Report 8222014-6 (Version None)
Quarter: 2012Q1

REPORT INFORMATION
  Report Type: 
  Country: None (occurrence: None)
  Receive Date: 20120320
  Receipt Date: 20120308
  Transmission Date: 20120608
  Serious: Yes (Hospitalization)
  Sender: FDA-Public Use
  Company Number: GB-US-EMD SERONO, INC.-7117700

PATIENT
  Sex: Female

DRUGS (2)
  1. REBIF [Suspect]
     Indication: PRODUCT USED FOR UNKNOWN INDICATION
     Route: 058
     Dates: start: 20080101
  2. REBIF [Suspect]
     Dates: start: 20110701

REACTIONS (2)
  - HEPATIC ENZYME INCREASED [None]
  - LOWER RESPIRATORY TRACT INFECTION [None]
